FAERS Safety Report 23983228 (Version 1)
Quarter: 2024Q2

REPORT INFORMATION
  Report Type: Spontaneous
  Country: US (occurrence: US)
  Receive Date: 20240617
  Receipt Date: 20240617
  Transmission Date: 20240715
  Serious: No
  Sender: FDA-Public Use
  Company Number: US-BRISTOL-MYERS SQUIBB COMPANY-2024-095964

PATIENT
  Age: 97 Year
  Sex: Male

DRUGS (1)
  1. REVLIMID [Suspect]
     Active Substance: LENALIDOMIDE
     Indication: Plasma cell myeloma
     Dosage: TAKE 1 TIME A DAY FOR 21 DAYS ON AND 14 DAYS OFF
     Route: 048
     Dates: start: 202404

REACTIONS (2)
  - Rash [Unknown]
  - Off label use [Unknown]
